FAERS Safety Report 16192163 (Version 2)
Quarter: 2019Q2

REPORT INFORMATION
  Report Type: Spontaneous
  Country: IT (occurrence: IT)
  Receive Date: 20190412
  Receipt Date: 20190419
  Transmission Date: 20190711
  Serious: Yes (Death)
  Sender: FDA-Public Use
  Company Number: IT-ASTRAZENECA-2019SE55730

PATIENT
  Age: 62 Year
  Sex: Male

DRUGS (1)
  1. TAGRISSO [Suspect]
     Active Substance: OSIMERTINIB
     Indication: NON-SMALL CELL LUNG CANCER STAGE IV
     Dosage: 80 MG
     Route: 048
     Dates: start: 20190319

REACTIONS (4)
  - Haemorrhage [Fatal]
  - Malignant neoplasm progression [Fatal]
  - Haemoptysis [Fatal]
  - Shock haemorrhagic [Fatal]
